FAERS Safety Report 6045509-2 (Version None)
Quarter: 2009Q1

REPORT INFORMATION
  Report Type: 
  Country: None (occurrence: None)
  Receive Date: 20090121
  Receipt Date: 20090116
  Transmission Date: 20090719
  Serious: Yes (Hospitalization)
  Sender: FDA-Public Use
  Company Number: A0764011A

PATIENT
  Age: 80 Year
  Sex: Male
  Weight: 64 kg

DRUGS (7)
  1. REQUIP [Suspect]
     Indication: DRUG USE FOR UNKNOWN INDICATION
     Dosage: 4MG PER DAY
     Route: 048
  2. CEPHALEXIN [Concomitant]
     Route: 065
  3. NITROFURANTOIN [Concomitant]
     Route: 048
  4. OXAZEPAM [Concomitant]
     Route: 048
  5. RIVASA [Concomitant]
     Dosage: 80MG UNKNOWN
     Route: 048
  6. SINEMET [Concomitant]
     Route: 048
  7. VANCOMYCIN HCL [Concomitant]
     Route: 048

REACTIONS (1)
  - VASCULITIS [None]
